FAERS Safety Report 9807947 (Version 2)
Quarter: 2014Q1

REPORT INFORMATION
  Report Type: Report from Study
  Country: US (occurrence: US)
  Receive Date: 20140110
  Receipt Date: 20140319
  Transmission Date: 20141002
  Serious: Yes (Hospitalization)
  Sender: FDA-Public Use
  Company Number: US-PFIZER INC-2014006459

PATIENT
  Age: 69 Year
  Sex: Male

DRUGS (30)
  1. ZOSYN [Suspect]
     Indication: PNEUMONIA
     Dosage: UNK
     Dates: start: 20131128, end: 20131203
  2. VANCOMYCIN HCL [Suspect]
     Indication: PNEUMONIA
     Dosage: UNK
     Dates: start: 20131128, end: 20131202
  3. BLINDED THERAPY [Suspect]
     Indication: METASTATIC MALIGNANT MELANOMA
     Dosage: UNK
     Route: 041
     Dates: start: 20131119
  4. AMOXICILLIN W/CLAVULANATE POTASSIUM [Concomitant]
     Dosage: UNK
     Dates: start: 20131130
  5. ALLOPURINOL [Concomitant]
     Dosage: UNK
     Dates: start: 2008
  6. ASCORBIC ACID [Concomitant]
     Dosage: UNK
     Dates: start: 2012
  7. CALCIUM [Concomitant]
     Dosage: UNK
     Dates: start: 2011
  8. VITAMIN D3 [Concomitant]
     Dosage: UNK
     Dates: start: 2011
  9. CLOPIDOGREL BISULFATE [Concomitant]
     Dosage: UNK
     Dates: start: 201309
  10. CYANOCOBALAMIN [Concomitant]
     Dosage: UNK
     Dates: start: 2011
  11. FLAXSEED [Concomitant]
     Dosage: UNK
     Dates: start: 201309
  12. GREEN TEA EXTRACT [Concomitant]
     Dosage: UNK
     Dates: start: 2010
  13. OMEGA 3 FATTY ACID [Concomitant]
     Dosage: UNK
     Dates: start: 2010
  14. OMEPRAZOLE [Concomitant]
     Dosage: UNK
     Dates: start: 2008
  15. OXYCODONE [Concomitant]
     Dosage: UNK
     Dates: start: 201309
  16. VITAMIN A [Concomitant]
     Dosage: UNK
     Dates: start: 2012
  17. TERAZOSIN HYDROCHLORIDE [Concomitant]
     Dosage: UNK
     Dates: start: 2006
  18. SENOKOT [Concomitant]
     Indication: LAXATIVE SUPPORTIVE CARE
  19. SENNA [Concomitant]
     Dosage: UNK
     Dates: start: 20131119, end: 20131127
  20. MIRALAX [Concomitant]
     Dosage: UNK
     Dates: start: 20131120, end: 20131129
  21. DOCUSATE SODIUM [Concomitant]
     Dosage: UNK
     Dates: start: 20131125, end: 20131127
  22. TRIAMCINOLONE [Concomitant]
     Dosage: UNK
     Dates: start: 20131126, end: 20131203
  23. LACTULOSE [Concomitant]
     Dosage: UNK
     Dates: start: 20131126, end: 20131127
  24. MAGNESIUM CITRATE [Concomitant]
     Dosage: UNK
     Dates: start: 20131126, end: 20131127
  25. OFIRMEV [Concomitant]
  26. LASIX [Concomitant]
  27. DEXAMETHASONE [Concomitant]
  28. PREDNISONE [Concomitant]
  29. PAMIDRONATE [Concomitant]
  30. SODIUM CHLORIDE [Concomitant]

REACTIONS (2)
  - Thrombocytopenia [Not Recovered/Not Resolved]
  - Haemolysis [Not Recovered/Not Resolved]
